FAERS Safety Report 6409387-1 (Version None)
Quarter: 2009Q4

REPORT INFORMATION
  Report Type: 
  Country: None (occurrence: None)
  Receive Date: 20091019
  Receipt Date: 20091019
  Transmission Date: 20100525
  Serious: Yes (Other)
  Sender: FDA-Public Use
  Company Number: None

PATIENT
  Age: 87 Year
  Sex: Female
  Weight: 55 kg

DRUGS (17)
  1. MARINOL [Suspect]
     Indication: DECREASED APPETITE
     Dosage: MARINOL ORAL
     Route: 048
     Dates: start: 20090602, end: 20090603
  2. KDUR [Concomitant]
  3. ZOCOR [Concomitant]
  4. PRILOSEC [Concomitant]
  5. BUMEX [Concomitant]
  6. DIGOXIN [Concomitant]
  7. VICODIN [Concomitant]
  8. MITRAZOL [Concomitant]
  9. DILTIAZEM [Concomitant]
  10. ASPIRIN [Concomitant]
  11. XOPENEX [Concomitant]
  12. ACETAMINOPHEN [Concomitant]
  13. MILK OF MAGNESIA TAB [Concomitant]
  14. HEPARIN [Concomitant]
  15. ONDANSETRON [Concomitant]
  16. BACTRIM [Concomitant]
  17. NYSTATIN [Concomitant]

REACTIONS (1)
  - LIP SWELLING [None]
